FAERS Safety Report 7040254-9 (Version None)
Quarter: 2010Q4

REPORT INFORMATION
  Report Type: 
  Country: None (occurrence: None)
  Receive Date: 20101012
  Receipt Date: 20101004
  Transmission Date: 20110411
  Serious: Yes (Hospitalization)
  Sender: FDA-Public Use
  Company Number: JP-ACTELION-A-JP2008-20577

PATIENT
  Sex: Female
  Weight: 59 kg

DRUGS (10)
  1. BOSENTAN TABLET 62.5 MG JPN [Suspect]
     Indication: PULMONARY HYPERTENSION
     Dosage: 125 MG, BID
     Route: 048
     Dates: start: 20080426, end: 20080523
  2. BOSENTAN TABLET 62.5 MG JPN [Suspect]
     Dosage: 62.5 MG, BID
     Route: 048
     Dates: start: 20080410, end: 20080425
  3. BERAPROST SODIUM [Concomitant]
  4. SILDENAFIL CITRATE [Concomitant]
  5. WARFARIN SODIUM [Concomitant]
  6. OXYGEN [Concomitant]
  7. FAMOTIDINE [Concomitant]
  8. MECOBALAMIN [Concomitant]
  9. DENOPAMINE [Concomitant]
  10. TEPRENONE [Concomitant]

REACTIONS (3)
  - ALANINE AMINOTRANSFERASE INCREASED [None]
  - ASPARTATE AMINOTRANSFERASE INCREASED [None]
  - LIVER FUNCTION TEST ABNORMAL [None]
